FAERS Safety Report 16531311 (Version 2)
Quarter: 2019Q3

REPORT INFORMATION
  Report Type: Spontaneous
  Country: CN (occurrence: CN)
  Receive Date: 20190705
  Receipt Date: 20190708
  Transmission Date: 20191004
  Serious: Yes (Death, Other)
  Sender: FDA-Public Use
  Company Number: CN-ASTRAZENECA-2019SE95618

PATIENT
  Age: 18484 Day
  Sex: Female
  Weight: 55 kg

DRUGS (2)
  1. LYNPARZA [Suspect]
     Active Substance: OLAPARIB
     Indication: OVARIAN EPITHELIAL CANCER
     Route: 048
     Dates: start: 2018, end: 201810
  2. FENTANYL. [Concomitant]
     Active Substance: FENTANYL
     Indication: PAIN
     Dosage: PATIENTS BEGAN TO TAKE THE MEDICATION ONE HALF SLICE, THEN ONE SLICE, ONE AND A HALF SLICES, AND ...
     Dates: start: 2018

REACTIONS (7)
  - Tumour marker increased [Unknown]
  - Metastases to abdominal cavity [Unknown]
  - Drug resistance [Unknown]
  - Ileus [Fatal]
  - Small intestinal obstruction [Unknown]
  - Hypophagia [Unknown]
  - Weight decreased [Unknown]

NARRATIVE: CASE EVENT DATE: 20181010
